APPROVED DRUG PRODUCT: DOXAZOSIN MESYLATE
Active Ingredient: DOXAZOSIN MESYLATE
Strength: EQ 4MG BASE
Dosage Form/Route: TABLET;ORAL
Application: A075353 | Product #003
Applicant: TEVA PHARMACEUTICALS USA INC
Approved: Jan 12, 2001 | RLD: No | RS: No | Type: DISCN